FAERS Safety Report 6763789-2 (Version None)
Quarter: 2010Q2

REPORT INFORMATION
  Report Type: 
  Country: None (occurrence: None)
  Receive Date: 20100608
  Receipt Date: 20100529
  Transmission Date: 20101027
  Serious: Yes (Other)
  Sender: FDA-Public Use
  Company Number: 231557J10USA

PATIENT
  Age: 31 Year
  Sex: Female

DRUGS (11)
  1. REBIF [Suspect]
     Indication: MULTIPLE SCLEROSIS
     Dosage: 44 MCG, 3 IN 1 WK, SUBCUTANEOUS
     Route: 058
     Dates: start: 20090325
  2. GLUCOPHAGE [Concomitant]
  3. GLIMEPIRIDE [Concomitant]
  4. LANTUS [Concomitant]
  5. LIPITOR [Concomitant]
  6. NIACIN (NICOTINC ACID) [Concomitant]
  7. ZOLOFT (SERTRATLINE) [Concomitant]
  8. XANAX [Concomitant]
  9. TOPAMAX [Concomitant]
  10. RESTORIL [Concomitant]
  11. AMBIEN [Concomitant]

REACTIONS (19)
  - ANGER [None]
  - ANKLE FRACTURE [None]
  - ARTHRALGIA [None]
  - ASTHENIA [None]
  - BACK PAIN [None]
  - DEPRESSION [None]
  - DIABETES MELLITUS [None]
  - DIABETES MELLITUS INADEQUATE CONTROL [None]
  - FACE INJURY [None]
  - FALL [None]
  - HEADACHE [None]
  - HEPATIC ENZYME INCREASED [None]
  - INJECTION SITE ERYTHEMA [None]
  - INJECTION SITE HAEMATOMA [None]
  - INTENTIONAL SELF-INJURY [None]
  - LOSS OF CONSCIOUSNESS [None]
  - MALAISE [None]
  - SUICIDAL IDEATION [None]
  - SUICIDE ATTEMPT [None]
